FAERS Safety Report 6406731-6 (Version None)
Quarter: 2009Q4

REPORT INFORMATION
  Report Type: 
  Country: None (occurrence: None)
  Receive Date: 20091020
  Receipt Date: 20091008
  Transmission Date: 20100525
  Serious: Yes (Death, Life-Threatening, Hospitalization)
  Sender: FDA-Public Use
  Company Number: JP-JNJFOC-20090601380

PATIENT
  Sex: Female

DRUGS (10)
  1. REMICADE [Suspect]
     Dosage: 4TH INFUSION
     Route: 042
     Dates: start: 20090110, end: 20090425
  2. REMICADE [Suspect]
     Indication: RHEUMATOID ARTHRITIS
     Route: 042
     Dates: start: 20090110, end: 20090425
  3. DIOVAN [Concomitant]
     Indication: HYPERTENSION
     Route: 048
  4. PREDNISOLONE [Concomitant]
     Indication: RHEUMATOID ARTHRITIS
     Route: 048
  5. SOLETON [Concomitant]
     Indication: RHEUMATOID ARTHRITIS
     Dosage: DOSE: 2 TAB
     Route: 048
  6. RHEUMATREX [Concomitant]
     Indication: RHEUMATOID ARTHRITIS
     Route: 048
  7. LASIX [Concomitant]
     Indication: HYPERTENSION
     Route: 048
  8. ZANTAC [Concomitant]
     Indication: GASTRIC ULCER
     Route: 048
  9. MEVALOTIN [Concomitant]
     Indication: HYPERLIPIDAEMIA
     Route: 048
  10. WARFARIN SODIUM [Concomitant]
     Indication: AORTIC VALVE INCOMPETENCE
     Route: 048

REACTIONS (3)
  - HYPOTENSION [None]
  - SEPSIS [None]
  - TUBERCULOSIS [None]
